FAERS Safety Report 4322330-4 (Version None)
Quarter: 2004Q1

REPORT INFORMATION
  Report Type: 
  Country: None (occurrence: None)
  Receive Date: 20040319
  Receipt Date: 20040308
  Transmission Date: 20041129
  Serious: No
  Sender: FDA-Public Use
  Company Number: AU-JNJFOC-20031105277

PATIENT
  Age: 32 Year
  Sex: Male

DRUGS (11)
  1. REMICADE [Suspect]
     Indication: CROHN'S DISEASE
     Dosage: SEE IMAGE
     Route: 041
     Dates: start: 20010101, end: 20010101
  2. REMICADE [Suspect]
     Indication: FISTULA
     Dosage: SEE IMAGE
     Route: 041
     Dates: start: 20010101, end: 20010101
  3. REMICADE [Suspect]
     Indication: CROHN'S DISEASE
     Dosage: SEE IMAGE
     Route: 041
     Dates: start: 20030921, end: 20030921
  4. REMICADE [Suspect]
     Indication: FISTULA
     Dosage: SEE IMAGE
     Route: 041
     Dates: start: 20030921, end: 20030921
  5. REMICADE [Suspect]
     Indication: CROHN'S DISEASE
     Dosage: SEE IMAGE
     Route: 041
     Dates: start: 20031205, end: 20031205
  6. REMICADE [Suspect]
     Indication: FISTULA
     Dosage: SEE IMAGE
     Route: 041
     Dates: start: 20031205, end: 20031205
  7. AZATHIOPRINE [Concomitant]
  8. ACIMAX (OMEPRAZOLE) [Concomitant]
  9. NEO-CYTAMEN (HYDROXOCOBALAMIN) [Concomitant]
  10. VITAMINS AND MINERALS (VITAMINS WITH MINERALS) TABLETS [Concomitant]
  11. METRONIDAZOLE [Concomitant]

REACTIONS (8)
  - ANTINUCLEAR ANTIBODY POSITIVE [None]
  - CONJUNCTIVAL IRRITATION [None]
  - FUNGAL INFECTION [None]
  - NASAL ULCER [None]
  - RHINITIS [None]
  - RHINITIS ALLERGIC [None]
  - RHINORRHOEA [None]
  - STAPHYLOCOCCAL INFECTION [None]
